FAERS Safety Report 5547324-2 (Version None)
Quarter: 2007Q4

REPORT INFORMATION
  Report Type: 
  Country: None (occurrence: None)
  Receive Date: 20071211
  Receipt Date: 20071129
  Transmission Date: 20080405
  Serious: Yes (Hospitalization)
  Sender: FDA-Public Use
  Company Number: FR-PFIZER INC-2007101958

PATIENT
  Age: 19 Year
  Sex: Female

DRUGS (1)
  1. RELPAX [Suspect]
     Indication: MIGRAINE
     Dosage: TEXT:1 TABLET AS NEEDED
     Route: 048

REACTIONS (5)
  - ANGIOEDEMA [None]
  - COUGH [None]
  - EYE BURNS [None]
  - RESPIRATORY DISTRESS [None]
  - URTICARIA [None]
